FAERS Safety Report 12884466 (Version 1)
Quarter: 2016Q4

REPORT INFORMATION
  Report Type: Spontaneous
  Country: US (occurrence: US)
  Receive Date: 20161024
  Receipt Date: 20161024
  Transmission Date: 20170207
  Serious: Yes (Hospitalization)
  Sender: FDA-Public Use
  Company Number: None

PATIENT
  Age: 47 Year
  Sex: Female

DRUGS (9)
  1. ACYCLOVIR. [Concomitant]
     Active Substance: ACYCLOVIR
  2. ONDANSETRON [Concomitant]
     Active Substance: ONDANSETRON
  3. TEMOZOLOMIDE 180 MG CAP TEVA [Suspect]
     Active Substance: TEMOZOLOMIDE
     Indication: BRAIN NEOPLASM MALIGNANT
     Dosage: D1-5 OF 28D CYCLE
     Route: 048
     Dates: start: 20160502
  4. SYNTHROID [Concomitant]
     Active Substance: LEVOTHYROXINE SODIUM
  5. TEMOZOLOMIDE 25MG CAP TEVA [Suspect]
     Active Substance: TEMOZOLOMIDE
     Indication: BRAIN NEOPLASM MALIGNANT
     Dosage: D1-5 OF 28D CYCLE
     Route: 048
     Dates: start: 20160502
  6. DEXAMETHASON [Concomitant]
     Active Substance: DEXAMETHASONE
  7. CEPHALEXIN. [Concomitant]
     Active Substance: CEPHALEXIN
  8. HYDROCO/APAP [Concomitant]
     Active Substance: ACETAMINOPHEN\HYDROCODONE
  9. LIOTHYRONINE [Concomitant]
     Active Substance: LIOTHYRONINE

REACTIONS (2)
  - Haemorrhage [None]
  - Blood count abnormal [None]

NARRATIVE: CASE EVENT DATE: 20161009
